FAERS Safety Report 26044581 (Version 2)
Quarter: 2025Q4

REPORT INFORMATION
  Report Type: Spontaneous
  Country: US (occurrence: US)
  Receive Date: 20251114
  Receipt Date: 20251230
  Transmission Date: 20260118
  Serious: No
  Sender: TOLMAR
  Company Number: US-Tolmar-TLM-2025-08337

PATIENT
  Sex: Male

DRUGS (3)
  1. ELIGARD [Suspect]
     Active Substance: LEUPROLIDE ACETATE
     Indication: Prostate cancer
     Dosage: BOX LOT: 15371CUS EXP: 31-DEC-2026?SN#: 3291982175687?GTIN: 00362935461500?NDC: 62935046150?SYRINGE
     Route: 058
     Dates: start: 20251105
  2. ELIGARD [Suspect]
     Active Substance: LEUPROLIDE ACETATE
     Dosage: REPLACEMENT DOSE GIVEN
     Route: 058
     Dates: start: 20251105
  3. DEVICE [Suspect]
     Active Substance: DEVICE
     Indication: Prostate cancer
     Dosage: BOX LOT: 15371CUS EXP: 31-DEC-2026?SN#: 3291982175687?GTIN: 00362935461500?NDC: 62935046150?SYRINGE

REACTIONS (3)
  - Product physical consistency issue [Unknown]
  - Intercepted product administration error [Unknown]
  - Wrong technique in product usage process [Unknown]

NARRATIVE: CASE EVENT DATE: 20251105
